FAERS Safety Report 6481576-X (Version None)
Quarter: 2009Q4

REPORT INFORMATION
  Report Type: 
  Country: None (occurrence: None)
  Receive Date: 20091123
  Receipt Date: 20091002
  Transmission Date: 20100525
  Serious: No
  Sender: FDA-Public Use
  Company Number: 8052956

PATIENT
  Age: 74 Year
  Sex: Female
  Weight: 117.4 kg

DRUGS (6)
  1. CIMZIA [Suspect]
     Indication: RHEUMATOID ARTHRITIS
     Dosage: 400 MG SC
     Route: 058
     Dates: start: 20090919
  2. LISINOPRIL [Concomitant]
  3. NIFEDIPINE [Concomitant]
  4. ATENOLOL [Concomitant]
  5. GLIPIZIDE [Concomitant]
  6. LOVASTATIN [Concomitant]

REACTIONS (5)
  - BACK PAIN [None]
  - BLOOD GLUCOSE FLUCTUATION [None]
  - FORMICATION [None]
  - HEADACHE [None]
  - JOINT SWELLING [None]
